FAERS Safety Report 15884425 (Version 1)
Quarter: 2019Q1

REPORT INFORMATION
  Report Type: Spontaneous
  Country: US (occurrence: US)
  Receive Date: 20190129
  Receipt Date: 20190129
  Transmission Date: 20190417
  Serious: No
  Sender: FDA-Public Use
  Company Number: US-SHIRE-US201901924

PATIENT
  Sex: Male

DRUGS (1)
  1. XIIDRA [Suspect]
     Active Substance: LIFITEGRAST
     Indication: DRY EYE
     Route: 047
     Dates: start: 20190114

REACTIONS (5)
  - Cough [Unknown]
  - Product lot number issue [Unknown]
  - Instillation site erythema [Unknown]
  - Instillation site pain [Unknown]
  - Product expiration date issue [Unknown]
